FAERS Safety Report 8317408-4 (Version None)
Quarter: 2012Q2

REPORT INFORMATION
  Report Type: 
  Country: None (occurrence: None)
  Receive Date: 20120427
  Receipt Date: 20120423
  Transmission Date: 20120825
  Serious: Yes (Other)
  Sender: FDA-Public Use
  Company Number: US-BAYER-2012-027346

PATIENT
  Age: 45 Year
  Sex: Female

DRUGS (1)
  1. BETASERON [Suspect]
     Indication: RELAPSING-REMITTING MULTIPLE SCLEROSIS
     Dosage: 6 MIU, QOD
     Route: 058
     Dates: start: 20101106

REACTIONS (5)
  - INJECTION SITE PAIN [None]
  - MERALGIA PARAESTHETICA [None]
  - SJOGREN'S SYNDROME [None]
  - WEIGHT DECREASED [None]
  - FATIGUE [None]
